FAERS Safety Report 6312478-7 (Version None)
Quarter: 2009Q3

REPORT INFORMATION
  Report Type: 
  Country: None (occurrence: None)
  Receive Date: 20090813
  Receipt Date: 20090730
  Transmission Date: 20100115
  Serious: Yes (Hospitalization, Other)
  Sender: FDA-Public Use
  Company Number: 2009SP017253

PATIENT
  Age: 50 Year
  Sex: Male

DRUGS (2)
  1. PEG-INTRON [Suspect]
     Indication: HEPATITIS C
     Dates: start: 20090101
  2. RIBAVIRIN [Suspect]
     Indication: HEPATITIS C
     Dates: start: 20090101

REACTIONS (6)
  - ANAEMIA [None]
  - BLOOD IRON DECREASED [None]
  - BONE PAIN [None]
  - INFUSION SITE THROMBOSIS [None]
  - PALLOR [None]
  - WHITE BLOOD CELL COUNT DECREASED [None]
